FAERS Safety Report 5420720-X (Version None)
Quarter: 2007Q3

REPORT INFORMATION
  Report Type: 
  Country: None (occurrence: None)
  Receive Date: 20070821
  Receipt Date: 20070813
  Transmission Date: 20080115
  Serious: Yes (Life-Threatening, Hospitalization)
  Sender: FDA-Public Use
  Company Number: GB-AVENTIS-200713958EU

PATIENT
  Age: 64 Year
  Sex: Male

DRUGS (5)
  1. LITHIUM CARBONATE [Suspect]
     Indication: HYPOMANIA
  2. LITHIUM CARBONATE [Suspect]
  3. RAMIPRIL [Suspect]
     Indication: ANGIOTENSIN CONVERTING ENZYME
  4. FUROSEMIDE [Suspect]
     Indication: DIURETIC THERAPY
  5. AMILORIDE HYDROCHLORIDE [Concomitant]
     Indication: DIURETIC THERAPY

REACTIONS (3)
  - DRUG INTERACTION [None]
  - DRUG LEVEL INCREASED [None]
  - NEPHROGENIC DIABETES INSIPIDUS [None]
